FAERS Safety Report 22232119 (Version 1)
Quarter: 2023Q2

REPORT INFORMATION
  Report Type: Spontaneous
  Country: US (occurrence: None)
  Receive Date: 20230420
  Receipt Date: 20230420
  Transmission Date: 20230721
  Serious: No
  Sender: FDA-Public Use
  Company Number: US-ROCHE-3149608

PATIENT
  Age: 70 Year
  Sex: Female

DRUGS (1)
  1. ESBRIET [Suspect]
     Active Substance: PIRFENIDONE
     Indication: Pulmonary fibrosis
     Route: 048
     Dates: start: 20200918

REACTIONS (6)
  - Abdominal pain [Unknown]
  - Gastrointestinal motility disorder [Unknown]
  - Diarrhoea [Unknown]
  - Faeces soft [Unknown]
  - Flatulence [Unknown]
  - Frequent bowel movements [Unknown]

NARRATIVE: CASE EVENT DATE: 20220101
